FAERS Safety Report 21770713 (Version 1)
Quarter: 2022Q4

REPORT INFORMATION
  Report Type: Spontaneous
  Country: ES (occurrence: None)
  Receive Date: 20221223
  Receipt Date: 20221223
  Transmission Date: 20230113
  Serious: Yes (Other)
  Sender: FDA-Public Use
  Company Number: ES-Unichem Pharmaceuticals (USA) Inc-UCM202212-001353

PATIENT
  Age: 63 Year
  Sex: Female

DRUGS (2)
  1. QUETIAPINE [Suspect]
     Active Substance: QUETIAPINE
     Indication: Histrionic personality disorder
     Dosage: UNKNOWN
  2. VENLAFAXINE [Suspect]
     Active Substance: VENLAFAXINE HYDROCHLORIDE
     Indication: Histrionic personality disorder
     Dosage: UNKNOWN

REACTIONS (2)
  - Colitis ischaemic [Unknown]
  - Product use in unapproved indication [Unknown]
